FAERS Safety Report 5598448-5 (Version None)
Quarter: 2008Q1

REPORT INFORMATION
  Report Type: 
  Country: None (occurrence: None)
  Receive Date: 20080122
  Receipt Date: 20080117
  Transmission Date: 20080703
  Serious: Yes (Death, Life-Threatening)
  Sender: FDA-Public Use
  Company Number: JP-JNJFOC-20080101510

PATIENT
  Sex: Female
  Weight: 33 kg

DRUGS (12)
  1. ITRIZOLE [Suspect]
     Route: 041
  2. ITRIZOLE [Suspect]
     Indication: BRONCHOPULMONARY ASPERGILLOSIS
     Route: 041
  3. LASIX [Concomitant]
     Indication: CARDIAC FAILURE
     Route: 042
  4. SOLDACTONE [Concomitant]
     Indication: CARDIAC FAILURE
     Route: 042
  5. CEFMETAZON [Concomitant]
     Indication: PNEUMONIA ASPIRATION
     Route: 042
  6. BERIZYM [Concomitant]
     Route: 048
  7. SELBEX [Concomitant]
     Route: 048
  8. DIGOXIN [Concomitant]
     Indication: CARDIAC FAILURE
     Route: 048
  9. ENALAPRIL MALEATE [Concomitant]
     Indication: HYPERTENSION
     Route: 048
  10. GASTER D [Concomitant]
     Route: 048
  11. CANDESARTAN CILEXETIL [Concomitant]
     Indication: HYPERTENSION
     Route: 048
  12. FRANDOL [Concomitant]
     Indication: ANGINA PECTORIS
     Route: 048

REACTIONS (4)
  - ASPARTATE AMINOTRANSFERASE INCREASED [None]
  - BRONCHOPULMONARY ASPERGILLOSIS [None]
  - GAMMA-GLUTAMYLTRANSFERASE INCREASED [None]
  - NEUTROPENIA [None]
